FAERS Safety Report 7797849-4 (Version None)
Quarter: 2011Q4

REPORT INFORMATION
  Report Type: 
  Country: None (occurrence: None)
  Receive Date: 20111005
  Receipt Date: 20110930
  Transmission Date: 20120403
  Serious: Yes (Hospitalization, Other)
  Sender: FDA-Public Use
  Company Number: US-BRISTOL-MYERS SQUIBB COMPANY-16120255

PATIENT
  Sex: Male

DRUGS (3)
  1. GLIPIZIDE [Concomitant]
     Indication: DIABETES MELLITUS
  2. ONGLYZA [Suspect]
     Indication: DIABETES MELLITUS
     Dates: start: 20110501
  3. METFORMIN HCL [Concomitant]
     Indication: DIABETES MELLITUS

REACTIONS (1)
  - WOUND INFECTION [None]
